FAERS Safety Report 22223882 (Version 2)
Quarter: 2024Q3

REPORT INFORMATION
  Report Type: Spontaneous
  Country: US (occurrence: US)
  Receive Date: 20230418
  Receipt Date: 20240728
  Transmission Date: 20241017
  Serious: No
  Sender: SUNOVION
  Company Number: US-UROVANT SCIENCES GMBH-202301-URV-000070

PATIENT
  Age: 75 Year
  Sex: Female
  Weight: 54.422 kg

DRUGS (2)
  1. GEMTESA [Suspect]
     Active Substance: VIBEGRON
     Indication: Hypertonic bladder
     Dosage: 75 MG, QD
     Route: 048
     Dates: start: 20230110, end: 20230117
  2. GEMTESA [Suspect]
     Active Substance: VIBEGRON
     Dosage: 75 MG, QD
     Route: 048
     Dates: start: 20230119

REACTIONS (2)
  - Nasopharyngitis [Recovered/Resolved]
  - Nasopharyngitis [Not Recovered/Not Resolved]

NARRATIVE: CASE EVENT DATE: 20230117
